FAERS Safety Report 5836248-9 (Version None)
Quarter: 2008Q3

REPORT INFORMATION
  Report Type: 
  Country: None (occurrence: None)
  Receive Date: 20080730
  Receipt Date: 20070806
  Transmission Date: 20090109
  Serious: Yes (Other)
  Sender: FDA-Public Use
  Company Number: US-JNJFOC-20070604627

PATIENT
  Age: 17 Year
  Sex: Male

DRUGS (1)
  1. IMODIUM ADVANCED (LOPERAMIDE/SIMETHICONE) CHEWABLE TABLET [Suspect]
     Indication: DIARRHOEA

REACTIONS (2)
  - ABDOMINAL PAIN [None]
  - FLATULENCE [None]
